FAERS Safety Report 8744060 (Version 3)
Quarter: 2013Q2

REPORT INFORMATION
  Report Type: Report from Study
  Country: JP (occurrence: JP)
  Receive Date: 20120824
  Receipt Date: 20130417
  Transmission Date: 20140414
  Serious: Yes (Other)
  Sender: FDA-Public Use
  Company Number: JP-B.I. PHARMACEUTICALS,INC./RIDGEFIELD-2012-BP-19643NB

PATIENT
  Age: 66 Year
  Sex: Male
  Weight: 64.6 kg

DRUGS (2)
  1. MICAMLO COMBINATION [Suspect]
     Indication: HYPERTENSION
     Route: 048
     Dates: start: 20110601
  2. LIPITOR [Concomitant]
     Dosage: 10 MG
     Route: 048
     Dates: start: 20110608, end: 20110705

REACTIONS (1)
  - Drug effect incomplete [Not Recovered/Not Resolved]
